FAERS Safety Report 22061453 (Version 1)
Quarter: 2023Q1

REPORT INFORMATION
  Report Type: Spontaneous
  Country: PT (occurrence: PT)
  Receive Date: 20230304
  Receipt Date: 20230304
  Transmission Date: 20230417
  Serious: Yes (Other)
  Sender: FDA-Public Use
  Company Number: PT-VIIV HEALTHCARE LIMITED-PT2022EME129098

PATIENT
  Age: 54 Year
  Sex: Male

DRUGS (9)
  1. LOPINAVIR\RITONAVIR [Suspect]
     Active Substance: LOPINAVIR\RITONAVIR
     Indication: Antiretroviral therapy
     Dosage: UNK
     Route: 065
     Dates: start: 2004, end: 2013
  2. LOPINAVIR\RITONAVIR [Suspect]
     Active Substance: LOPINAVIR\RITONAVIR
     Indication: Antiretroviral therapy
     Dosage: UNK
     Route: 048
     Dates: start: 2004, end: 2013
  3. LAMIVUDINE\ZIDOVUDINE [Suspect]
     Active Substance: LAMIVUDINE\ZIDOVUDINE
     Indication: Antiretroviral therapy
     Dosage: UNK
     Route: 065
     Dates: start: 2004, end: 2010
  4. JULUCA [Suspect]
     Active Substance: DOLUTEGRAVIR SODIUM\RILPIVIRINE HYDROCHLORIDE
     Indication: Antiretroviral therapy
     Dosage: UNK
     Route: 065
     Dates: start: 2022
  5. ABACAVIR SULFATE\LAMIVUDINE [Suspect]
     Active Substance: ABACAVIR SULFATE\LAMIVUDINE
     Indication: Antiretroviral therapy
     Dosage: UNK
     Route: 065
     Dates: start: 2010, end: 2013
  6. ABACAVIR SULFATE\LAMIVUDINE [Suspect]
     Active Substance: ABACAVIR SULFATE\LAMIVUDINE
     Indication: Antiretroviral therapy
     Dosage: UNK
     Route: 065
     Dates: start: 2013, end: 2022
  7. RITONAVIR [Suspect]
     Active Substance: RITONAVIR
     Indication: Antiretroviral therapy
     Dosage: UNK
     Route: 065
     Dates: start: 2013
  8. DARUNAVIR\RITONAVIR [Suspect]
     Active Substance: DARUNAVIR\RITONAVIR
     Indication: Antiretroviral therapy
     Dosage: UNK
     Route: 065
     Dates: start: 2013, end: 2022
  9. DARUNAVIR [Suspect]
     Active Substance: DARUNAVIR
     Indication: Antiretroviral therapy
     Dosage: UNK
     Route: 065
     Dates: start: 2013, end: 2022

REACTIONS (10)
  - Diabetes mellitus [Unknown]
  - Hyperglycaemia [Unknown]
  - Chronic kidney disease [Unknown]
  - Glomerular filtration rate decreased [Unknown]
  - Weight increased [Unknown]
  - Proteinuria [Unknown]
  - Dyslipidaemia [Unknown]
  - Viraemia [Unknown]
  - Nephroangiosclerosis [Unknown]
  - Viral load increased [Unknown]

NARRATIVE: CASE EVENT DATE: 20040101
